FAERS Safety Report 17863383 (Version 1)
Quarter: 2020Q2

REPORT INFORMATION
  Report Type: Spontaneous
  Country: GB (occurrence: GB)
  Receive Date: 20200605
  Receipt Date: 20200605
  Transmission Date: 20200714
  Serious: Yes (Other)
  Sender: FDA-Public Use
  Company Number: GB-TEVA-2020-GB-1244019

PATIENT
  Age: 18 Year
  Sex: Male

DRUGS (18)
  1. DOMPERIDONE MALEATE [Concomitant]
     Active Substance: DOMPERIDONE MALEATE
  2. CIPROFLOXACIN HYDROCHLORIDE. [Suspect]
     Active Substance: CIPROFLOXACIN HYDROCHLORIDE
     Dosage: 750 MG
     Route: 048
     Dates: start: 20200506
  3. DORNASE ALFA. [Concomitant]
     Active Substance: DORNASE ALFA
  4. SALBUTAMOL [Concomitant]
     Active Substance: ALBUTEROL
  5. LACTULOSE. [Concomitant]
     Active Substance: LACTULOSE
  6. MELATONIN [Concomitant]
     Active Substance: MELATONIN
  7. SODIUM CHLORIDE. [Concomitant]
     Active Substance: SODIUM CHLORIDE
     Dosage: 7 PERCENT
  8. AZITHROMYCIN ANHYDROUS. [Concomitant]
     Active Substance: AZITHROMYCIN ANHYDROUS
  9. ESOMEPRAZOLE. [Concomitant]
     Active Substance: ESOMEPRAZOLE MAGNESIUM
  10. CHLORAL HYDRATE [Concomitant]
     Active Substance: CHLORAL HYDRATE
  11. SODIUM VALPROATE [Concomitant]
     Active Substance: VALPROATE SODIUM
  12. HYOSCINE [Concomitant]
     Active Substance: SCOPOLAMINE
  13. MIDAZOLAM. [Concomitant]
     Active Substance: MIDAZOLAM
  14. IBUPROFEN. [Concomitant]
     Active Substance: IBUPROFEN
  15. NITRAZEPAM [Concomitant]
     Active Substance: NITRAZEPAM
  16. CO-CARELDOPA [Concomitant]
     Active Substance: CARBIDOPA\LEVODOPA
  17. GLYCOPYRRONIUM BROMIDE [Concomitant]
     Active Substance: GLYCOPYRRONIUM
  18. PARACETAMOL [Concomitant]
     Active Substance: ACETAMINOPHEN

REACTIONS (6)
  - Skin discolouration [Unknown]
  - Photosensitivity reaction [Unknown]
  - Swelling face [Recovered/Resolved with Sequelae]
  - Drug hypersensitivity [Unknown]
  - Skin discharge [Unknown]
  - Blister [Unknown]

NARRATIVE: CASE EVENT DATE: 20200506
